FAERS Safety Report 8449196-5 (Version None)
Quarter: 2012Q2

REPORT INFORMATION
  Report Type: 
  Country: None (occurrence: None)
  Receive Date: 20120613
  Receipt Date: 20120613
  Transmission Date: 20120825
  Serious: Yes (Other)
  Sender: FDA-Public Use
  Company Number: None

PATIENT
  Age: 51 Year
  Sex: Female
  Weight: 62 kg

DRUGS (1)
  1. GABAPENTIN [Suspect]
     Dates: start: 20120130

REACTIONS (2)
  - PARADOXICAL DRUG REACTION [None]
  - PAIN [None]
